FAERS Safety Report 9792313 (Version 1)
Quarter: 2014Q1

REPORT INFORMATION
  Report Type: Spontaneous
  Country: GB (occurrence: GB)
  Receive Date: 20140102
  Receipt Date: 20140102
  Transmission Date: 20141002
  Serious: Yes (Other)
  Sender: FDA-Public Use
  Company Number: GB-BAUSCH-BL-2013-007051

PATIENT
  Age: 83 Year
  Sex: Female
  Weight: 83 kg

DRUGS (6)
  1. DEXAMETHASONE [Suspect]
     Indication: GENERAL ANAESTHESIA
     Dates: start: 20130325, end: 20130325
  2. MIDAZOLAM [Suspect]
     Indication: GENERAL ANAESTHESIA
     Dates: start: 20130325, end: 20130325
  3. PROPOFOL [Suspect]
     Indication: GENERAL ANAESTHESIA
     Dates: start: 20130325, end: 20130325
  4. REMIFENTANIL [Suspect]
     Indication: GENERAL ANAESTHESIA
     Route: 065
     Dates: start: 20130325, end: 20130325
  5. ROCURONIUM [Suspect]
     Indication: GENERAL ANAESTHESIA
     Dates: start: 20130325, end: 20130325
  6. TARGOCID [Suspect]
     Indication: ANTIBIOTIC PROPHYLAXIS
     Dates: start: 20130325, end: 20130325

REACTIONS (1)
  - Procedural hypotension [Recovered/Resolved]
